FAERS Safety Report 20535763 (Version 1)
Quarter: 2022Q1

REPORT INFORMATION
  Report Type: Spontaneous
  Country: US (occurrence: None)
  Receive Date: 20220302
  Receipt Date: 20220302
  Transmission Date: 20220423
  Serious: No
  Sender: FDA-Public Use
  Company Number: 2022A076632

PATIENT
  Sex: Female
  Weight: 51.3 kg

DRUGS (1)
  1. TAGRISSO [Suspect]
     Active Substance: OSIMERTINIB
     Indication: Non-small cell lung cancer
     Route: 048
     Dates: start: 202006

REACTIONS (2)
  - Laryngitis viral [Not Recovered/Not Resolved]
  - Productive cough [Not Recovered/Not Resolved]
